FAERS Safety Report 10800860 (Version 3)
Quarter: 2016Q1

REPORT INFORMATION
  Report Type: Spontaneous
  Country: US (occurrence: US)
  Receive Date: 20150216
  Receipt Date: 20160217
  Transmission Date: 20160525
  Serious: No
  Sender: FDA-Public Use
  Company Number: US-ALLERGAN-1426276US

PATIENT
  Age: 57 Year
  Sex: Female

DRUGS (5)
  1. RESTASIS [Suspect]
     Active Substance: CYCLOSPORINE
     Indication: EYE IRRITATION
     Dosage: 2 GTT, Q12H
     Route: 047
     Dates: start: 20141219
  2. NEXIUM [Concomitant]
     Active Substance: ESOMEPRAZOLE MAGNESIUM
     Dosage: UNK
  3. CENESTIN [Concomitant]
     Active Substance: ESTROGENS, CONJUGATED SYNTHETIC A
     Indication: BLOOD OESTROGEN
     Dosage: UNK
  4. MEDROXYPROGESTERONE [Concomitant]
     Active Substance: MEDROXYPROGESTERONE
     Indication: HORMONE REPLACEMENT THERAPY
     Dosage: UNK
  5. LIPITOR [Concomitant]
     Active Substance: ATORVASTATIN CALCIUM
     Dosage: UNK

REACTIONS (2)
  - Drug ineffective [Unknown]
  - Headache [Unknown]
